FAERS Safety Report 6516167-5 (Version None)
Quarter: 2009Q4

REPORT INFORMATION
  Report Type: 
  Country: None (occurrence: None)
  Receive Date: 20091223
  Receipt Date: 20090119
  Transmission Date: 20100525
  Serious: No
  Sender: FDA-Public Use
  Company Number: US-ABBOTT-09P-163-0498748-00

PATIENT
  Sex: Male
  Weight: 59.02 kg

DRUGS (1)
  1. BIAXIN [Suspect]
     Indication: PNEUMONIA PRIMARY ATYPICAL
     Dosage: 50 MG/ML
     Route: 048
     Dates: start: 20090106, end: 20090113

REACTIONS (5)
  - ABDOMINAL DISCOMFORT [None]
  - ABDOMINAL PAIN UPPER [None]
  - ANGIOEDEMA [None]
  - URTICARIA [None]
  - WEIGHT DECREASED [None]
